FAERS Safety Report 10438423 (Version 1)
Quarter: 2014Q3

REPORT INFORMATION
  Report Type: Spontaneous
  Country: SE (occurrence: SE)
  Receive Date: 20140908
  Receipt Date: 20140908
  Transmission Date: 20150326
  Serious: Yes (Hospitalization)
  Sender: FDA-Public Use
  Company Number: PHHY2014SE111009

PATIENT
  Age: 74 Year
  Sex: Female

DRUGS (4)
  1. ENALAPRIL SANDOZ [Concomitant]
     Active Substance: ENALAPRIL
     Dosage: 20 MG, UNK
  2. TEGRETOL [Suspect]
     Active Substance: CARBAMAZEPINE
     Indication: TRIGEMINAL NEURALGIA
     Dosage: UNK UKN, UNK
     Dates: start: 201407, end: 201408
  3. GABAPENTIN ACTAVIS [Concomitant]
     Active Substance: GABAPENTIN
     Dosage: 300 MG, CAPSULE, HARD
  4. CARDIZEM [Concomitant]
     Active Substance: DILTIAZEM HYDROCHLORIDE
     Dosage: UNK UKN, UNK
     Dates: end: 201408

REACTIONS (2)
  - C-reactive protein increased [Unknown]
  - Pyrexia [Unknown]

NARRATIVE: CASE EVENT DATE: 20140816
